FAERS Safety Report 4680337-1 (Version None)
Quarter: 2005Q2

REPORT INFORMATION
  Report Type: 
  Country: None (occurrence: None)
  Receive Date: 20050601
  Receipt Date: 20050524
  Transmission Date: 20051028
  Serious: Yes (Other)
  Sender: FDA-Public Use
  Company Number: 200511219GDS

PATIENT
  Age: 80 Year
  Sex: Female

DRUGS (12)
  1. CIPROFLOXACIN HCL [Suspect]
     Dosage: 750 MG, BID, ORAL
     Route: 048
  2. DICLOXACILLIN [Concomitant]
  3. HEPARIN [Concomitant]
  4. ALFACALCIDIOL [Concomitant]
  5. PROPRANOLOL [Concomitant]
  6. RANITIDINE [Concomitant]
  7. FUROSEMIDE [Concomitant]
  8. METHENAMINE HIPPURATE [Concomitant]
  9. PARACETAMOL [Concomitant]
  10. MORPHINE [Concomitant]
  11. ONDANSETRON [Concomitant]
  12. LEVOTHYROXINE SODIUM [Suspect]
     Indication: THYROID DISORDER
     Dosage: SEE IMAGE

REACTIONS (7)
  - BLOOD THYROID STIMULATING HORMONE INCREASED [None]
  - DRUG INEFFECTIVE [None]
  - DRUG INTERACTION [None]
  - FATIGUE [None]
  - THYROID CANCER METASTATIC [None]
  - THYROXINE FREE DECREASED [None]
  - TRI-IODOTHYRONINE FREE DECREASED [None]
